FAERS Safety Report 7297348-2 (Version None)
Quarter: 2011Q1

REPORT INFORMATION
  Report Type: 
  Country: None (occurrence: None)
  Receive Date: 20110216
  Receipt Date: 20110210
  Transmission Date: 20110831
  Serious: Yes (Hospitalization, Disabling, Other)
  Sender: FDA-Public Use
  Company Number: US-B.I. PHARMACEUTICALS,INC./RIDGEFIELD-2011-BP-02723BP

PATIENT
  Sex: Female

DRUGS (10)
  1. PRADAXA [Suspect]
     Indication: ATRIAL FIBRILLATION
  2. LISINOPRIL [Concomitant]
     Indication: HYPERTENSION
  3. AMIODARONE [Concomitant]
     Dosage: 200 MG
     Dates: start: 20101201
  4. HUMULIN N [Concomitant]
     Indication: DIABETES MELLITUS
  5. SYNTHROID [Concomitant]
     Indication: HYPOTHYROIDISM
  6. HUMALOG R [Concomitant]
     Indication: DIABETES MELLITUS
  7. PRADAXA [Suspect]
     Indication: ARRHYTHMIA
     Dosage: 300 MG
     Route: 048
     Dates: start: 20110106, end: 20110206
  8. LOPRESSOR [Concomitant]
     Indication: HYPERTENSION
  9. PLAVIX [Concomitant]
     Indication: MYOCARDIAL INFARCTION
     Dosage: 75 MG
     Dates: start: 20070101
  10. ASPIRIN [Concomitant]
     Indication: MYOCARDIAL INFARCTION
     Dosage: 325 MG
     Dates: start: 20070101

REACTIONS (3)
  - TRANSIENT ISCHAEMIC ATTACK [None]
  - HEMIPARESIS [None]
  - VIITH NERVE PARALYSIS [None]
